FAERS Safety Report 7360229-X (Version None)
Quarter: 2011Q1

REPORT INFORMATION
  Report Type: 
  Country: None (occurrence: None)
  Receive Date: 20110307
  Receipt Date: 20110225
  Transmission Date: 20110831
  Serious: Yes (Disabling, Other)
  Sender: FDA-Public Use
  Company Number: OSCN-NO-1003S-0056

PATIENT
  Age: 46 Year
  Sex: Female

DRUGS (3)
  1. LIDOCAINE (XYLOCAIN) [Concomitant]
     Dosage: 5 ML, SINGLE DOSE, INTRA-ARTICULAR ,  5 ML, SINGLE DOSE, S.C.
     Route: 014
     Dates: start: 20090907, end: 20090907
  2. LIDOCAINE (XYLOCAIN) [Concomitant]
     Dosage: 5 ML, SINGLE DOSE, INTRA-ARTICULAR ,  5 ML, SINGLE DOSE, S.C.
     Route: 014
     Dates: start: 20090907, end: 20090907
  3. OMNISCAN [Suspect]
     Indication: PRODUCT USED FOR UNKNOWN INDICATION
     Dosage: 0.2 ML, SINGLE DOSE, INTRA-ARTICULAR
     Route: 014
     Dates: start: 20090907, end: 20090907

REACTIONS (10)
  - FATIGUE [None]
  - HEADACHE [None]
  - DISTURBANCE IN ATTENTION [None]
  - MALAISE [None]
  - OFF LABEL USE [None]
  - DIZZINESS [None]
  - ANXIETY DISORDER [None]
  - TREMOR [None]
  - ASTHENIA [None]
  - NAUSEA [None]
